FAERS Safety Report 9926595 (Version 1)
Quarter: 2014Q1

REPORT INFORMATION
  Report Type: Spontaneous
  Country: US (occurrence: US)
  Receive Date: 20140226
  Receipt Date: 20140226
  Transmission Date: 20141002
  Serious: No
  Sender: FDA-Public Use
  Company Number: US-AMGEN-USASP2013075193

PATIENT
  Age: 60 Year
  Sex: Female
  Weight: 86.17 kg

DRUGS (6)
  1. ENBREL [Suspect]
     Indication: PRODUCT USED FOR UNKNOWN INDICATION
     Dosage: 50 MG, QWK
     Route: 058
  2. HUMIRA [Concomitant]
     Indication: PSORIASIS
     Dosage: UNK
  3. ENALAPRIL [Concomitant]
     Dosage: 20 MG, UNK
  4. SIMVASTATIN [Concomitant]
     Dosage: 40 MG, UNK
  5. METFORMIN [Concomitant]
     Dosage: 500 MG, UNK
  6. HYDROCHLOROTH [Concomitant]
     Dosage: 25 MG, UNK

REACTIONS (1)
  - Drug ineffective [Unknown]
